FAERS Safety Report 23608298 (Version 2)
Quarter: 2024Q2

REPORT INFORMATION
  Report Type: Report from Study
  Country: IT (occurrence: IT)
  Receive Date: 20240307
  Receipt Date: 20240404
  Transmission Date: 20240716
  Serious: Yes (Other)
  Sender: FDA-Public Use
  Company Number: IT-JNJFOC-20240305525

PATIENT
  Age: 67 Year
  Sex: Female

DRUGS (10)
  1. ESKETAMINE [Suspect]
     Active Substance: ESKETAMINE
     Indication: Depression
     Dosage: 28 MG (1 DEVICE)
     Dates: start: 20231009, end: 20231009
  2. ESKETAMINE [Suspect]
     Active Substance: ESKETAMINE
     Dosage: 28 MG, (1 DEVICE)
     Dates: start: 20231013, end: 20231013
  3. ESKETAMINE [Suspect]
     Active Substance: ESKETAMINE
     Dosage: 28 MG, (1 DEVICE)
     Dates: start: 20231017, end: 20231017
  4. ESKETAMINE [Suspect]
     Active Substance: ESKETAMINE
     Dosage: 28 MG, (1 DEVICE)
     Dates: start: 20231020, end: 20231020
  5. ESKETAMINE [Suspect]
     Active Substance: ESKETAMINE
     Dosage: 28 MG, (1 DEVICE)
     Dates: start: 20231023, end: 20231023
  6. ESKETAMINE [Suspect]
     Active Substance: ESKETAMINE
     Dosage: 28 MG, (1 DEVICE)
     Dates: start: 20231027, end: 20231027
  7. ESKETAMINE [Suspect]
     Active Substance: ESKETAMINE
     Dosage: 28 MG, (1 DEVICE)
     Dates: start: 20231031, end: 20231031
  8. ESKETAMINE [Suspect]
     Active Substance: ESKETAMINE
     Dosage: 28 MG, (1 DEVICE)
     Dates: start: 20231103, end: 20231103
  9. ESKETAMINE [Suspect]
     Active Substance: ESKETAMINE
     Dosage: 28 MG, (1 DEVICE)
     Dates: start: 20231111, end: 20231111
  10. ESKETAMINE [Suspect]
     Active Substance: ESKETAMINE
     Dosage: 28 MG, (1 DEVICE)
     Dates: start: 20231118, end: 20231118

REACTIONS (1)
  - Pneumonia [Recovered/Resolved]

NARRATIVE: CASE EVENT DATE: 20231124
